FAERS Safety Report 7070858-9 (Version None)
Quarter: 2010Q4

REPORT INFORMATION
  Report Type: 
  Country: None (occurrence: None)
  Receive Date: 20101029
  Receipt Date: 20101015
  Transmission Date: 20110411
  Serious: Yes (Other)
  Sender: FDA-Public Use
  Company Number: PHHY2010US69540

PATIENT
  Age: 70 Year
  Sex: Female

DRUGS (5)
  1. GENTEAL (NVO) [Suspect]
  2. ZADITOR [Concomitant]
  3. ALLOWAY [Concomitant]
  4. VISINE EYE DROPS [Concomitant]
  5. BACITRACIN [Concomitant]

REACTIONS (3)
  - BLINDNESS TRANSIENT [None]
  - DRUG INEFFECTIVE [None]
  - VISUAL IMPAIRMENT [None]
